FAERS Safety Report 8851894 (Version 1)
Quarter: 2012Q4

REPORT INFORMATION
  Report Type: Spontaneous
  Country: GB (occurrence: None)
  Receive Date: 20121017
  Receipt Date: 20121017
  Transmission Date: 20130627
  Serious: Yes (Life-Threatening, Other)
  Sender: FDA-Public Use
  Company Number: AUR-APL-2012-04398

PATIENT
  Age: 59 Year
  Sex: Female
  Weight: 103 kg

DRUGS (18)
  1. AMOXICILLIN AND CLAVULANIC ACID [Suspect]
     Indication: DRUG USE FOR UNKNOWN INDICATION
  2. AMOXICILLIN [Concomitant]
  3. ATRACURIUM [Concomitant]
  4. CO-CODAMOL (PANADEINE CO) [Concomitant]
  5. DILTIAZEM [Concomitant]
  6. ETANERCEPT [Concomitant]
  7. FENTANYL [Concomitant]
  8. FLUOXETINE [Concomitant]
  9. GTN (GLYCERYL TRINITRATE) [Concomitant]
  10. LIGNOCAINE (LIDOCAINE) [Concomitant]
  11. METHOTREXATE [Concomitant]
  12. NEFOPAM [Concomitant]
  13. OMEPRAZOLE [Concomitant]
  14. OXYGEN [Concomitant]
  15. PROPOFOL-LIPURO (PROPOFOL) [Concomitant]
  16. SALBUTAMOL [Concomitant]
  17. SEVOFLURANE [Concomitant]
  18. TRAMADOL [Concomitant]

REACTIONS (4)
  - Anaphylactic reaction [None]
  - Hypotension [None]
  - Cyanosis [None]
  - Bronchospasm [None]
